FAERS Safety Report 7712817-6 (Version None)
Quarter: 2011Q3

REPORT INFORMATION
  Report Type: 
  Country: None (occurrence: None)
  Receive Date: 20110826
  Receipt Date: 20110812
  Transmission Date: 20111222
  Serious: Yes (Hospitalization)
  Sender: FDA-Public Use
  Company Number: PHHY2011JP70550

PATIENT
  Age: 68 Year
  Sex: Male

DRUGS (4)
  1. PREDNISOLONE [Concomitant]
     Dosage: 5 MG, UNK
     Route: 048
  2. WARFARIN SODIUM [Concomitant]
     Dosage: 1 MG, UNK
     Route: 048
  3. CYCLOSPORINE [Suspect]
     Indication: NEPHROTIC SYNDROME
     Dosage: 2.5 MG, UNK
     Route: 048
  4. LANSOPRAZOLE [Suspect]
     Dosage: 30 MG, UNK
     Route: 048

REACTIONS (12)
  - GASTROINTESTINAL OEDEMA [None]
  - HAEMORRHAGE [None]
  - DIARRHOEA [None]
  - PYREXIA [None]
  - LEUKAEMIC INFILTRATION [None]
  - ULCER HAEMORRHAGE [None]
  - ABDOMINAL PAIN [None]
  - ENTERITIS [None]
  - LYMPHOCYTIC INFILTRATION [None]
  - CLOSTRIDIUM TEST POSITIVE [None]
  - COLITIS MICROSCOPIC [None]
  - HAEMATOCHEZIA [None]
